FAERS Safety Report 9114889 (Version 1)
Quarter: 2013Q1

REPORT INFORMATION
  Report Type: Spontaneous
  Country: PT (occurrence: None)
  Receive Date: 20130123
  Receipt Date: 20130123
  Transmission Date: 20140127
  Serious: Yes (Death, Life-Threatening, Hospitalization, Disabling, Congenital Anomaly)
  Sender: FDA-Public Use
  Company Number: ALB-002-12-PT

PATIENT
  Age: 49 Year
  Sex: Male

DRUGS (1)
  1. ALBUNOM [Suspect]
     Indication: ABDOMINAL CAVITY DRAINAGE
     Dosage: 60 G - 1 X 1/D
     Route: 042
     Dates: start: 20120217, end: 20120217

REACTIONS (1)
  - Rash erythematous [None]
